FAERS Safety Report 8579156-5 (Version None)
Quarter: 2012Q3

REPORT INFORMATION
  Report Type: 
  Country: None (occurrence: None)
  Receive Date: 20120726
  Receipt Date: 20120713
  Transmission Date: 20120928
  Serious: Yes (Other)
  Sender: FDA-Public Use
  Company Number: 2012-01097

PATIENT
  Age: 76 Year
  Sex: Female

DRUGS (2)
  1. LOSARTAN POTASSIUM [Suspect]
     Indication: HYPERTENSION
     Dosage: (25 MG,),ORAL
     Route: 048
     Dates: start: 20120608, end: 20120609
  2. VERAPAMIL [Concomitant]

REACTIONS (1)
  - ERYTHEMA MULTIFORME [None]
